FAERS Safety Report 9058388 (Version 1)
Quarter: 2013Q1

REPORT INFORMATION
  Report Type: Spontaneous
  Country: US (occurrence: None)
  Receive Date: 20130130
  Receipt Date: 20130130
  Transmission Date: 20140127
  Serious: Yes (Other)
  Sender: FDA-Public Use
  Company Number: None

PATIENT
  Age: 37 Year
  Sex: Male
  Weight: 72.58 kg

DRUGS (2)
  1. AMBIEN [Suspect]
     Indication: SLEEP DISORDER
     Dosage: 1X DAILY
     Route: 048
     Dates: start: 20121218, end: 20130105
  2. LOPERAMIDE [Suspect]
     Indication: DIARRHOEA
     Dosage: 2CAP@HS  ?OVER LAST 14
     Route: 048

REACTIONS (4)
  - Diarrhoea [None]
  - Nausea [None]
  - Muscle spasms [None]
  - Drug ineffective [None]
